FAERS Safety Report 7444438-7 (Version None)
Quarter: 2011Q2

REPORT INFORMATION
  Report Type: 
  Country: None (occurrence: None)
  Receive Date: 20110429
  Receipt Date: 20110315
  Transmission Date: 20111010
  Serious: Yes (Other)
  Sender: FDA-Public Use
  Company Number: US-ENDO PHARMACEUTICALS INC.-HCTZ20110002

PATIENT
  Sex: Female
  Weight: 61.23 kg

DRUGS (3)
  1. HYDROCHLOROTHIAZIDE TABLETS [Suspect]
     Indication: OEDEMA
     Route: 048
     Dates: start: 20100603, end: 20110202
  2. LEXAPRO [Suspect]
     Indication: ANXIETY
  3. LEXAPRO [Suspect]
     Indication: DEPRESSION
     Route: 048
     Dates: start: 20110201, end: 20110202

REACTIONS (2)
  - HYPONATRAEMIA [None]
  - GRAND MAL CONVULSION [None]
